FAERS Safety Report 9513679 (Version 1)
Quarter: 2013Q1

REPORT INFORMATION
  Report Type: Spontaneous
  Country: US (occurrence: None)
  Receive Date: 20130305
  Receipt Date: 20130305
  Transmission Date: 20140127
  Serious: Yes (Other)
  Sender: FDA-Public Use
  Company Number: 163-21880-12102102

PATIENT
  Age: 71 Year
  Sex: Male

DRUGS (20)
  1. REVLIMID (LENALIDOMIE) (10 MILLIGRAM, CAPSULES) [Suspect]
     Indication: PLASMA CELL MYELOMA
     Dosage: 14 IN 14 D
     Route: 048
     Dates: start: 200903
  2. DEXAMETHASONE (DEXAMETHASONE) (4 MILLIGRAM, UNKNOWN) [Concomitant]
  3. ASPIRIN (ACETYLSALICYLIC ACID) (TABLETS) [Concomitant]
  4. BACTRIM DS (BACTRIM) (TABLETS) [Concomitant]
  5. GABAPENTIN (GABAPENTIN) (300 MILLIGRAM, CAPSULES) [Concomitant]
  6. LEVOFLOXACIN (LEVOFLOXACIN) (TABLETS) [Concomitant]
  7. MULTIVITAMIN (MULTIVITAMINS) (CAPSULES) [Concomitant]
  8. NORCO (VICODIN) (TABLETS) [Concomitant]
  9. SIMVASTATIN (SIMVASTATIN) (40 MILLIGRAM, TABLETS) [Concomitant]
  10. TRICOR (FENOFIBRATE) (145 MILLIGRAM, TABLETS) [Concomitant]
  11. VALTREX (VALACICLOVIR HYDROCHLORIDE) (TABLETS) [Concomitant]
  12. VELCADE [Concomitant]
  13. ALLOPURINOL (ALLOPURINOL) (TABLETS) [Concomitant]
  14. COLCHINE (COLCHINE) (0.6 MILLIGRAM, TABLETS) [Concomitant]
  15. KRYPOLIS (CARFOLZOMIB) (UNKNOWN) [Concomitant]
  16. PACKED RED BLOOD CELLS (BLOOD CELLS, PACKED HUMAN) (UNKNOWN) [Concomitant]
  17. LASIX (FUROSEMIDE) (UNKNOWN) [Concomitant]
  18. DIPHENHYDRAMINE (DIPHENHYDRAMINE) (UNKNOWN) [Concomitant]
  19. ACETAMINOPHEN (PARACETAMOL) (UNKNOWN) (PARACETAMOL) [Concomitant]
  20. NORMAL SALINE (SODIUM CHLORIDE) (UNKNOWN) [Concomitant]

REACTIONS (5)
  - Anaemia [None]
  - Drug ineffective [None]
  - Plasma cell myeloma [None]
  - Neuropathy peripheral [None]
  - Pneumonia [None]
